FAERS Safety Report 24975142 (Version 4)
Quarter: 2025Q3

REPORT INFORMATION
  Report Type: Spontaneous
  Country: US (occurrence: US)
  Receive Date: 20250217
  Receipt Date: 20250901
  Transmission Date: 20251020
  Serious: Yes (Hospitalization)
  Sender: ROCHE
  Company Number: US-ROCHE-10000208920

PATIENT
  Sex: Male

DRUGS (21)
  1. ESBRIET [Suspect]
     Active Substance: PIRFENIDONE
     Indication: Seasonal allergy
     Dosage: TAKE 1 TABLET 3 TIMES DAILY X 1 WEEK THEN TAKE 2 TABLET 3 TIMES DAILY X 1 WEEK THEN THEN  TAKE 3 TAB
     Route: 048
  2. ESBRIET [Suspect]
     Active Substance: PIRFENIDONE
     Route: 048
  3. ESBRIET [Suspect]
     Active Substance: PIRFENIDONE
     Route: 065
     Dates: start: 20250114
  4. ESBRIET [Suspect]
     Active Substance: PIRFENIDONE
     Dosage: 3 TABLET
     Route: 048
  5. ALBUTEROL SULFATE [Concomitant]
     Active Substance: ALBUTEROL SULFATE
  6. ASPIRIN [Concomitant]
     Active Substance: ASPIRIN
  7. BREO ELLIPTA [Concomitant]
     Active Substance: FLUTICASONE FUROATE\VILANTEROL TRIFENATATE
  8. BUPROPION [Concomitant]
     Active Substance: BUPROPION
  9. DILTIAZEM [Concomitant]
     Active Substance: DILTIAZEM
  10. FARXIGA [Concomitant]
     Active Substance: DAPAGLIFLOZIN PROPANEDIOL
  11. LYRICA [Concomitant]
     Active Substance: PREGABALIN
  12. MELOXICAM [Concomitant]
     Active Substance: MELOXICAM
  13. OLANZAPINE [Concomitant]
     Active Substance: OLANZAPINE
  14. OXYBUTYNIN CHLORIDE [Concomitant]
     Active Substance: OXYBUTYNIN CHLORIDE
  15. PRAVASTATIN SODIUM [Concomitant]
     Active Substance: PRAVASTATIN SODIUM
  16. PROPRANOLOL [Concomitant]
     Active Substance: PROPRANOLOL HYDROCHLORIDE
  17. SINGULAIR [Concomitant]
     Active Substance: MONTELUKAST SODIUM
  18. TAMSULOSIN H CAP 0.4MG [Concomitant]
  19. TOUJEO MAX S SOP 300UNIT [Concomitant]
  20. XTAMPZA ER C12 36MG [Concomitant]
  21. HYDROCODONE- TAB 10-325MG [Concomitant]

REACTIONS (4)
  - Off label use [Unknown]
  - Hypersensitivity [Unknown]
  - Dyspnoea [Unknown]
  - Blood glucose increased [Unknown]
